FAERS Safety Report 21442495 (Version 1)
Quarter: 2022Q4

REPORT INFORMATION
  Report Type: Spontaneous
  Country: US (occurrence: None)
  Receive Date: 20221010
  Receipt Date: 20221010
  Transmission Date: 20230112
  Serious: No
  Sender: FDA-Public Use
  Company Number: None

PATIENT
  Age: 53 Year
  Sex: Female

DRUGS (1)
  1. DUPIXENT [Suspect]
     Active Substance: DUPILUMAB
     Indication: Dermatitis atopic
     Dosage: 300MG EVERY OTHER WEEK SUBCUTANEOUS
     Route: 058
     Dates: start: 201909

REACTIONS (4)
  - Device malfunction [None]
  - Device issue [None]
  - Syringe issue [None]
  - Drug dose omission by device [None]

NARRATIVE: CASE EVENT DATE: 20221009
